FAERS Safety Report 5779423-4 (Version None)
Quarter: 2008Q2

REPORT INFORMATION
  Report Type: 
  Country: None (occurrence: None)
  Receive Date: 20080619
  Receipt Date: 20070827
  Transmission Date: 20081010
  Serious: No
  Sender: FDA-Public Use
  Company Number: US-ASTRAZENECA-2007UW20380

PATIENT
  Age: 82 Year
  Sex: Male
  Weight: 80.3 kg

DRUGS (4)
  1. ATACAND [Suspect]
     Route: 048
  2. PRANDIN [Concomitant]
  3. ASPIRIN [Concomitant]
  4. OMEGA 3 [Concomitant]

REACTIONS (3)
  - DIZZINESS [None]
  - HEADACHE [None]
  - POLLAKIURIA [None]
